FAERS Safety Report 6370015-5 (Version None)
Quarter: 2009Q3

REPORT INFORMATION
  Report Type: 
  Country: None (occurrence: None)
  Receive Date: 20090923
  Receipt Date: 20070911
  Transmission Date: 20100115
  Serious: No
  Sender: FDA-Public Use
  Company Number: US-ASTRAZENECA-2006UW08106

PATIENT
  Age: 336 Month
  Sex: Male
  Weight: 156.5 kg

DRUGS (15)
  1. SEROQUEL [Suspect]
     Indication: ANXIETY
     Route: 048
     Dates: start: 20041201
  2. SEROQUEL [Suspect]
     Dosage: 200 TO 300 MG
     Route: 048
  3. GEODON [Concomitant]
     Dates: start: 20060303
  4. RISPERDAL [Concomitant]
     Dates: start: 20030103
  5. HYDROCHLOROTHIAZIDE [Concomitant]
     Route: 065
  6. PRAVACHOL [Concomitant]
     Route: 065
     Dates: start: 20080215
  7. ZOLOFT [Concomitant]
     Route: 065
  8. LISINOPRIL [Concomitant]
     Route: 065
  9. ASPIRIN [Concomitant]
     Route: 065
  10. CEPHALEXIN [Concomitant]
     Dosage: 250 TO 500 MG
     Route: 065
  11. TRAMADOL HCL [Concomitant]
     Route: 065
  12. LOPRESSOR [Concomitant]
     Route: 065
  13. MEVACOR [Concomitant]
     Route: 065
  14. ALBUTEROL [Concomitant]
     Route: 065
  15. GLUCOPHAGE [Concomitant]
     Route: 065

REACTIONS (2)
  - DIABETES MELLITUS [None]
  - TYPE 2 DIABETES MELLITUS [None]
